FAERS Safety Report 6972680-8 (Version None)
Quarter: 2010Q3

REPORT INFORMATION
  Report Type: 
  Country: None (occurrence: None)
  Receive Date: 20100909
  Receipt Date: 20100226
  Transmission Date: 20110219
  Serious: No
  Sender: FDA-Public Use
  Company Number: US-KINGPHARMUSA00001-K201000230

PATIENT
  Age: 59 Year
  Sex: Female
  Weight: 52.154 kg

DRUGS (8)
  1. CYTOMEL [Suspect]
     Indication: HYPOTHYROIDISM
     Dosage: 25 MCG, QOD ALTERNATING WITH 50 MCG
     Route: 048
     Dates: start: 20100101
  2. CYTOMEL [Suspect]
     Dosage: 50 MCG, QOD ALTERNATING WITH 25 MCG
     Route: 048
     Dates: start: 20100101
  3. CYTOMEL [Suspect]
     Dosage: 25 MCG, QD
     Route: 048
     Dates: start: 20091101, end: 20091201
  4. CYTOMEL [Suspect]
     Dosage: 50 MCG, QD
     Route: 048
     Dates: start: 20091201, end: 20100101
  5. MULTI-VITAMIN [Concomitant]
     Dosage: UNK
  6. CALCIUM [Concomitant]
     Dosage: UNK
  7. FIBERMED [Concomitant]
     Indication: SUPPLEMENTATION THERAPY
     Dosage: UNK
  8. FISH OIL [Concomitant]
     Dosage: UNK

REACTIONS (2)
  - DYSGEUSIA [None]
  - PARAESTHESIA ORAL [None]
